FAERS Safety Report 25958655 (Version 2)
Quarter: 2025Q4

REPORT INFORMATION
  Report Type: Spontaneous
  Country: US (occurrence: US)
  Receive Date: 20251024
  Receipt Date: 20251119
  Transmission Date: 20260117
  Serious: Yes (Life-Threatening, Hospitalization, Other)
  Sender: ALEXION PHARMACEUTICALS
  Company Number: US-ASTRAZENECA-202510GLO022336US

PATIENT
  Age: 60 Year
  Sex: Female

DRUGS (10)
  1. ROSUVASTATIN [Suspect]
     Active Substance: ROSUVASTATIN
     Route: 065
  2. METOPROLOL TARTRATE [Suspect]
     Active Substance: METOPROLOL TARTRATE
     Route: 065
  3. LISINOPRIL [Suspect]
     Active Substance: LISINOPRIL
     Route: 065
  4. OMEPRAZOLE [Suspect]
     Active Substance: OMEPRAZOLE
     Route: 065
  5. VENLAFAXINE [Suspect]
     Active Substance: VENLAFAXINE HYDROCHLORIDE
     Route: 065
  6. CLONAZEPAM [Suspect]
     Active Substance: CLONAZEPAM
     Route: 065
  7. PREGABALIN [Suspect]
     Active Substance: PREGABALIN
     Route: 065
  8. ONDANSETRON [Suspect]
     Active Substance: ONDANSETRON
     Route: 065
  9. TRAZODONE [Suspect]
     Active Substance: TRAZODONE HYDROCHLORIDE
     Route: 065
  10. LEVOTHYROXINE [Suspect]
     Active Substance: LEVOTHYROXINE
     Route: 065

REACTIONS (14)
  - Intentional overdose [Unknown]
  - Hypothermia [Recovering/Resolving]
  - Pneumonia aspiration [Unknown]
  - Electrocardiogram QRS complex prolonged [Recovering/Resolving]
  - Drug level increased [Recovering/Resolving]
  - Pulseless electrical activity [Recovering/Resolving]
  - Ventricular tachycardia [Recovering/Resolving]
  - Ventricular dysfunction [Recovering/Resolving]
  - Intestinal ischaemia [Recovering/Resolving]
  - Acute kidney injury [Unknown]
  - Ischaemic hepatitis [Unknown]
  - Cardio-respiratory arrest [Unknown]
  - Cardiogenic shock [Unknown]
  - Depressed level of consciousness [Unknown]
